FAERS Safety Report 24716311 (Version 1)
Quarter: 2024Q4

REPORT INFORMATION
  Report Type: Spontaneous
  Country: US (occurrence: US)
  Receive Date: 20241210
  Receipt Date: 20241210
  Transmission Date: 20250114
  Serious: No
  Sender: BIOGEN
  Company Number: US-BIOGEN-2022BI01124527

PATIENT
  Sex: Female

DRUGS (5)
  1. VUMERITY [Suspect]
     Active Substance: DIROXIMEL FUMARATE
     Indication: Multiple sclerosis
     Dosage: STARTING DOSE
     Route: 050
     Dates: start: 20220128
  2. VUMERITY [Suspect]
     Active Substance: DIROXIMEL FUMARATE
     Dosage: MAINTENANCE DOSE
     Route: 050
  3. VUMERITY [Suspect]
     Active Substance: DIROXIMEL FUMARATE
     Dosage: TITRATION: VUMERITY 231MG 1 CAPSULE TWICE A DAY X 7 DAYS (12/7/21 TO 12/14/21) [THEN 231MG 2 CAPS...
     Route: 050
     Dates: start: 20211207, end: 20211214
  4. VUMERITY [Suspect]
     Active Substance: DIROXIMEL FUMARATE
     Dosage: [TITRATION: VUMERITY 231MG 1 CAPSULE TWICE A DAY X 7 DAYS (12/7/21 TO 12/14/21)] THEN 231MG 2 CAP...
     Route: 050
     Dates: start: 20211215
  5. CAPSAICIN [Suspect]
     Active Substance: CAPSAICIN
     Indication: Arthralgia
     Route: 050

REACTIONS (9)
  - Product dose omission in error [Unknown]
  - Multiple sclerosis relapse [Unknown]
  - Carpal tunnel syndrome [Unknown]
  - Arthralgia [Unknown]
  - Memory impairment [Unknown]
  - Depression [Unknown]
  - Rash macular [Recovered/Resolved]
  - Flushing [Recovered/Resolved]
  - Pruritus [Recovered/Resolved]
